FAERS Safety Report 15674167 (Version 6)
Quarter: 2021Q3

REPORT INFORMATION
  Report Type: Spontaneous
  Country: GB (occurrence: GB)
  Receive Date: 20181130
  Receipt Date: 20210719
  Transmission Date: 20211014
  Serious: Yes (Other)
  Sender: FDA-Public Use
  Company Number: GB-TEVA-2018-GB-980349

PATIENT
  Age: 51 Year
  Sex: Female

DRUGS (45)
  1. DOCETAXEL. [Suspect]
     Active Substance: DOCETAXEL
     Dosage: 130 MG
     Route: 042
     Dates: start: 20160511, end: 20160808
  2. TRASTUZUMAB. [Suspect]
     Active Substance: TRASTUZUMAB
     Dosage: LOADING DOSE, 388.5 MG
     Route: 042
     Dates: start: 20160606, end: 20160606
  3. ENOXAPARIN [Concomitant]
     Active Substance: ENOXAPARIN
     Indication: PRODUCT USED FOR UNKNOWN INDICATION
     Dosage: 40 MG
     Route: 058
     Dates: start: 20161101, end: 20161101
  4. ZOMORPH [Concomitant]
     Active Substance: MORPHINE SULFATE
     Dosage: 60 MILLIGRAM, DAILY, UNIT DOSE  : 120 MG
     Route: 048
  5. DOCETAXEL. [Suspect]
     Active Substance: DOCETAXEL
     Dosage: 120 MG
     Route: 042
     Dates: start: 20160808, end: 20160830
  6. PERTUZUMAB. [Suspect]
     Active Substance: PERTUZUMAB
     Indication: BREAST CANCER METASTATIC
     Dosage: LOADING DOSE,
     Route: 042
     Dates: start: 20160510, end: 20160510
  7. TRASTUZUMAB. [Suspect]
     Active Substance: TRASTUZUMAB
     Dosage: TIW,LOADING DOSE, 525 MG
     Route: 042
     Dates: start: 20160510, end: 20160510
  8. TRASTUZUMAB. [Suspect]
     Active Substance: TRASTUZUMAB
     Dosage: 162 MILLIGRAM DAILY; 378 MG
     Route: 042
     Dates: start: 20201013
  9. TRASTUZUMAB. [Suspect]
     Active Substance: TRASTUZUMAB
     Dosage: 388.5 MG
     Route: 042
     Dates: start: 20160718, end: 20160830
  10. CODEINE PHOSPHATE [Concomitant]
     Active Substance: CODEINE PHOSPHATE
     Indication: PRODUCT USED FOR UNKNOWN INDICATION
     Dosage: 60 MG
     Route: 048
     Dates: start: 20161101, end: 20161101
  11. SEVREDOL [Concomitant]
     Active Substance: MORPHINE
     Indication: PRODUCT USED FOR UNKNOWN INDICATION
     Dosage: 10 MILLIGRAM DAILY;
     Route: 048
     Dates: start: 20161101, end: 20161102
  12. CHLORPHENAMINE [Concomitant]
     Active Substance: CHLORPHENIRAMINE MALEATE
     Indication: PRODUCT USED FOR UNKNOWN INDICATION
     Dosage: 4 MG
     Route: 048
     Dates: start: 20160627, end: 20160830
  13. DOCETAXEL. [Suspect]
     Active Substance: DOCETAXEL
     Route: 042
     Dates: start: 20160808, end: 20160830
  14. PERTUZUMAB. [Suspect]
     Active Substance: PERTUZUMAB
     Dosage: LOADING DOSE
     Route: 042
     Dates: start: 20160606
  15. SEVREDOL [Concomitant]
     Active Substance: MORPHINE
     Dosage: 10 MILLIGRAM, DAILY
     Route: 048
     Dates: start: 20161101, end: 20161102
  16. ZOMORPH [Concomitant]
     Active Substance: MORPHINE SULFATE
     Indication: PRODUCT USED FOR UNKNOWN INDICATION
     Dosage: 60 MILLIGRAM DAILY;
     Route: 048
  17. DOCETAXEL. [Suspect]
     Active Substance: DOCETAXEL
     Dosage: 51.4286 MILLIGRAM DAILY; 120 MG
     Route: 042
     Dates: start: 20160808, end: 20160830
  18. TRASTUZUMAB. [Suspect]
     Active Substance: TRASTUZUMAB
     Dosage: LOADING DOSE, 388.5 MG
     Route: 042
     Dates: start: 20160718, end: 20160830
  19. TRASTUZUMAB. [Suspect]
     Active Substance: TRASTUZUMAB
     Dosage: LOADING DOSE, 357 MG
     Route: 042
     Dates: start: 20170201, end: 20170426
  20. TRASTUZUMAB. [Suspect]
     Active Substance: TRASTUZUMAB
     Dosage: LOADING DOSE, 378 MG
     Route: 042
     Dates: start: 20160627, end: 20160627
  21. TRASTUZUMAB. [Suspect]
     Active Substance: TRASTUZUMAB
     Dosage: 336 MG
     Route: 042
     Dates: start: 20170724
  22. TRASTUZUMAB. [Suspect]
     Active Substance: TRASTUZUMAB
     Dosage: 525 MG, LOADING DOSE
     Route: 041
     Dates: start: 20160510, end: 20160510
  23. SEVREDOL [Concomitant]
     Active Substance: MORPHINE
     Indication: PRODUCT USED FOR UNKNOWN INDICATION
     Route: 065
  24. PREGABALIN. [Concomitant]
     Active Substance: PREGABALIN
     Indication: PRODUCT USED FOR UNKNOWN INDICATION
     Route: 065
  25. SEVREDOL [Concomitant]
     Active Substance: MORPHINE
     Dosage: DAILY
     Route: 065
  26. PERTUZUMAB. [Suspect]
     Active Substance: PERTUZUMAB
     Dosage: 840 MILLIGRAM EVERY 3 WEEKS (LOADING DOSE) (ADDITIONAL INFO: DOSAGE FORM: 230)
     Route: 042
     Dates: start: 20160510, end: 20160510
  27. TRASTUZUMAB. [Suspect]
     Active Substance: TRASTUZUMAB
     Dosage: LOADING DOSE, 336 MG
     Route: 042
     Dates: start: 20170724, end: 20180904
  28. TRASTUZUMAB. [Suspect]
     Active Substance: TRASTUZUMAB
     Dosage: 336 MG, 3/WEEK
     Route: 042
     Dates: start: 20180925, end: 20200922
  29. METOCLOPRAMIDE. [Concomitant]
     Active Substance: METOCLOPRAMIDE
     Indication: PRODUCT USED FOR UNKNOWN INDICATION
     Dosage: 10 MG
     Route: 048
     Dates: start: 20160511, end: 20160830
  30. SEVREDOL [Concomitant]
     Active Substance: MORPHINE
     Dosage: 10 MG, EVERY 0.5 DAYS)
     Route: 048
     Dates: start: 20161101, end: 20161102
  31. SEVREDOL [Concomitant]
     Active Substance: MORPHINE
     Dosage: 30 MILLIGRAM DAILY;
     Route: 048
  32. ZOMORPH [Concomitant]
     Active Substance: MORPHINE SULFATE
     Dosage: 60 MG, EVERY 0.5 DAY
     Route: 048
  33. DOCETAXEL. [Suspect]
     Active Substance: DOCETAXEL
     Indication: BREAST CANCER METASTATIC
     Route: 042
     Dates: start: 20160511, end: 20160808
  34. ANASTROZOLE. [Suspect]
     Active Substance: ANASTROZOLE
     Indication: BREAST CANCER METASTATIC
     Dosage: 1 MILLIGRAM DAILY;
     Route: 048
     Dates: start: 20170127
  35. TRASTUZUMAB. [Suspect]
     Active Substance: TRASTUZUMAB
     Indication: BREAST CANCER METASTATIC
     Dosage: LOADING DOSE
     Route: 042
     Dates: start: 20160510, end: 20160510
  36. TRASTUZUMAB. [Suspect]
     Active Substance: TRASTUZUMAB
     Dosage: 525 MG, LOADING DOSE
     Route: 041
     Dates: start: 20160510, end: 20160510
  37. ZOMORPH [Concomitant]
     Active Substance: MORPHINE SULFATE
     Dosage: 120 MG
     Route: 048
  38. IRON [Concomitant]
     Active Substance: IRON
     Indication: PRODUCT USED FOR UNKNOWN INDICATION
     Route: 048
  39. DEXAMETHASONE. [Concomitant]
     Active Substance: DEXAMETHASONE
     Indication: PRODUCT USED FOR UNKNOWN INDICATION
     Dosage: 8 MG
     Route: 048
     Dates: start: 20160511, end: 20160830
  40. PARACETAMOL [Concomitant]
     Active Substance: ACETAMINOPHEN
     Indication: PRODUCT USED FOR UNKNOWN INDICATION
     Route: 048
  41. CYCLIZINE [Concomitant]
     Active Substance: CYCLIZINE
     Indication: PRODUCT USED FOR UNKNOWN INDICATION
     Dosage: 50 MG
     Route: 048
     Dates: start: 20160627, end: 20160830
  42. PERTUZUMAB. [Suspect]
     Active Substance: PERTUZUMAB
     Dosage: TRASTUZUMAB WAS GIVEN WITH PERTUZUMAB
     Route: 065
     Dates: start: 20180510
  43. TRASTUZUMAB. [Suspect]
     Active Substance: TRASTUZUMAB
     Dosage: LOADING DOSE, 346.5 MG
     Route: 042
     Dates: start: 20170517, end: 20170703
  44. TRASTUZUMAB. [Suspect]
     Active Substance: TRASTUZUMAB
     Dosage: LOADING DOSE, 367.5 MG
     Route: 042
     Dates: start: 20160920, end: 20170110
  45. TRASTUZUMAB. [Suspect]
     Active Substance: TRASTUZUMAB
     Dosage: TRASTUZUMAB WAS GIVEN WITH PERTUZUMAB
     Dates: start: 20180510

REACTIONS (11)
  - Lower respiratory tract infection [Recovered/Resolved]
  - Ejection fraction decreased [Not Recovered/Not Resolved]
  - Neutropenia [Recovered/Resolved]
  - Off label use [Unknown]
  - Rhinorrhoea [Not Recovered/Not Resolved]
  - Ejection fraction decreased [Not Recovered/Not Resolved]
  - Rhinorrhoea [Recovered/Resolved]
  - Anaemia [Recovered/Resolved]
  - Lacrimation increased [Recovered/Resolved]
  - Haemoglobin decreased [Recovered/Resolved]
  - Haemoglobin decreased [Recovered/Resolved]

NARRATIVE: CASE EVENT DATE: 20160715
